FAERS Safety Report 10184729 (Version 1)
Quarter: 2014Q2

REPORT INFORMATION
  Report Type: Spontaneous
  Country: US (occurrence: None)
  Receive Date: 20140519
  Receipt Date: 20140519
  Transmission Date: 20141212
  Serious: Yes (Hospitalization)
  Sender: FDA-Public Use
  Company Number: UNT-2014-000146

PATIENT
  Age: 37 Year
  Sex: Male
  Weight: 69.4 kg

DRUGS (2)
  1. REMODULIN (TREPROSTINIL SODIUM) INJECTION, 5MG/ML [Suspect]
     Indication: COR PULMONALE CHRONIC
     Route: 058
     Dates: start: 20140404
  2. WARFARIN [Concomitant]

REACTIONS (1)
  - Dyspnoea [None]
